APPROVED DRUG PRODUCT: METHOCARBAMOL
Active Ingredient: METHOCARBAMOL
Strength: 1GM/10ML (100MG/ML)
Dosage Form/Route: SOLUTION;IM-IV
Application: A206071 | Product #001
Applicant: NAVINTA LLC
Approved: Nov 24, 2017 | RLD: No | RS: No | Type: DISCN